FAERS Safety Report 9857245 (Version 1)
Quarter: 2014Q1

REPORT INFORMATION
  Report Type: Report from Study
  Country: CN (occurrence: CN)
  Receive Date: 20140130
  Receipt Date: 20140130
  Transmission Date: 20141002
  Serious: Yes (Other)
  Sender: FDA-Public Use
  Company Number: CN-BAXTER-2014BAX004884

PATIENT
  Sex: 0

DRUGS (20)
  1. ENDOXAN 1G [Suspect]
     Indication: STEM CELL TRANSPLANT
     Dosage: 1.8 G/M2 ON DAY -5 AND -4
     Route: 042
  2. 0.1% FLUCONAZOLE AND 0.9% SODIUM CHLORIDE INJECTION [Suspect]
     Indication: PRODUCT USED FOR UNKNOWN INDICATION
     Route: 065
  3. HYDROXYUREA [Suspect]
     Indication: BONE MARROW CONDITIONING REGIMEN
     Dosage: DAY -10
     Route: 048
  4. HYDROXYUREA [Suspect]
     Indication: STEM CELL TRANSPLANT
  5. CYTOSINE ARABINOSIDE [Suspect]
     Indication: BONE MARROW CONDITIONING REGIMEN
     Dosage: 2 G/M2 DAY -9
     Route: 042
  6. CYTOSINE ARABINOSIDE [Suspect]
     Indication: STEM CELL TRANSPLANT
  7. BUSULFAN [Suspect]
     Indication: BONE MARROW CONDITIONING REGIMEN
     Dosage: IN 12 DOSES DAY -8, -7 AND -6,
     Route: 042
  8. BUSULFAN [Suspect]
     Indication: STEM CELL TRANSPLANT
  9. SEMUSTINE [Suspect]
     Indication: BONE MARROW CONDITIONING REGIMEN
     Dosage: DAY -3
     Route: 048
  10. SEMUSTINE [Suspect]
     Indication: STEM CELL TRANSPLANT
  11. TRIMETHOPRIM SULFAMETHOXAZOLE [Suspect]
     Indication: PROPHYLAXIS
     Dosage: DAY -9 TO DAY + 30
     Route: 065
  12. TRIMETHOPRIM SULFAMETHOXAZOLE [Suspect]
     Dosage: DAY + 30 TO DAY +180
     Route: 065
  13. GANCICLOVIR [Suspect]
     Indication: PROPHYLAXIS
     Dosage: DAY -9 TO DAY -2
     Route: 042
  14. CYCLOSPORIN A [Suspect]
     Indication: PROPHYLAXIS
     Route: 065
  15. CYCLOSPORIN A [Suspect]
     Indication: GRAFT VERSUS HOST DISEASE
  16. MYCOPHENOLATE MOFETIL [Suspect]
     Indication: PROPHYLAXIS
     Route: 065
  17. MYCOPHENOLATE MOFETIL [Suspect]
     Indication: GRAFT VERSUS HOST DISEASE
  18. METHOTREXATE [Suspect]
     Indication: PROPHYLAXIS
     Route: 065
  19. METHOTREXATE [Suspect]
     Indication: GRAFT VERSUS HOST DISEASE
  20. ACYCLOVIR [Suspect]
     Indication: PROPHYLAXIS
     Dosage: DAY +1 TO 1 YEAR AFTER TRANSPLANT
     Route: 048

REACTIONS (1)
  - Febrile neutropenia [Unknown]
